FAERS Safety Report 7755172-8 (Version None)
Quarter: 2011Q3

REPORT INFORMATION
  Report Type: 
  Country: None (occurrence: None)
  Receive Date: 20110916
  Receipt Date: 20110617
  Transmission Date: 20111222
  Serious: No
  Sender: FDA-Public Use
  Company Number: US-GLAXOSMITHKLINE-A0869245A

PATIENT
  Age: 22 Year
  Sex: Male

DRUGS (5)
  1. ACNE MEDICATION [Concomitant]
  2. STARLIX [Concomitant]
  3. HEART MEDICATION [Concomitant]
  4. PROMACTA [Suspect]
     Indication: PLATELET COUNT DECREASED
     Dosage: 50MG PER DAY
     Route: 048
     Dates: start: 20100628, end: 20110217
  5. GLUCOPHAGE [Concomitant]

REACTIONS (4)
  - TREATMENT NONCOMPLIANCE [None]
  - ASTHENIA [None]
  - DIZZINESS [None]
  - PSYCHOLOGICAL FACTOR AFFECTING MEDICAL CONDITION [None]
